FAERS Safety Report 11937107 (Version 2)
Quarter: 2017Q3

REPORT INFORMATION
  Report Type: Report from Study
  Country: None (occurrence: BR)
  Receive Date: 20160121
  Receipt Date: 20170731
  Transmission Date: 20171127
  Serious: Yes (Other)
  Sender: FDA-Public Use
  Company Number: BR-ABBVIE-16K-020-1540119-00

PATIENT
  Age: 49 Year
  Sex: Female
  Weight: 65 kg

DRUGS (8)
  1. CYCLOBENZAPRINE. [Concomitant]
     Active Substance: CYCLOBENZAPRINE
     Indication: SPONDYLITIS
     Route: 048
     Dates: start: 20140901
  2. CALCIUM [Concomitant]
     Active Substance: CALCIUM
     Indication: OSTEOPOROSIS
     Route: 048
     Dates: start: 201504
  3. HUMIRA [Suspect]
     Active Substance: ADALIMUMAB
     Indication: ANKYLOSING SPONDYLITIS
     Route: 058
     Dates: start: 20140901
  4. ACETAMINOPHEN. [Concomitant]
     Active Substance: ACETAMINOPHEN
     Indication: SPONDYLITIS
     Route: 048
     Dates: start: 20140901
  5. METHOTREXATE. [Concomitant]
     Active Substance: METHOTREXATE
     Indication: SPONDYLITIS
     Route: 048
     Dates: start: 20140901
  6. CODEINE [Concomitant]
     Active Substance: CODEINE
     Indication: SPONDYLITIS
     Route: 048
     Dates: start: 20140901
  7. FAMOTIDINE. [Concomitant]
     Active Substance: FAMOTIDINE
     Indication: SPONDYLITIS
     Route: 048
     Dates: start: 20140901
  8. VELIJA [Concomitant]
     Active Substance: DULOXETINE HYDROCHLORIDE
     Indication: DEPRESSION
     Route: 048

REACTIONS (5)
  - Limb deformity [Not Recovered/Not Resolved]
  - Bone loss [Not Recovered/Not Resolved]
  - Blood cholesterol abnormal [Unknown]
  - Pain [Unknown]
  - Dermatitis allergic [Unknown]

NARRATIVE: CASE EVENT DATE: 201411
